FAERS Safety Report 18300512 (Version 1)
Quarter: 2020Q3

REPORT INFORMATION
  Report Type: Spontaneous
  Country: CA (occurrence: CA)
  Receive Date: 20200923
  Receipt Date: 20200923
  Transmission Date: 20201103
  Serious: Yes (Life-Threatening, Hospitalization)
  Sender: FDA-Public Use
  Company Number: CA-TEVA-2020-CA-1829955

PATIENT
  Age: 74 Year
  Sex: Female
  Weight: 127 kg

DRUGS (10)
  1. PACLITAXEL INJECTION USP [Suspect]
     Active Substance: PACLITAXEL
     Indication: ANGIOSARCOMA
     Route: 042
  2. AMLODIPINE [Concomitant]
     Active Substance: AMLODIPINE BESYLATE
  3. GABAPENTIN. [Concomitant]
     Active Substance: GABAPENTIN
  4. JAMP FERROUS FUMARATE [Concomitant]
  5. PERINDOPRIL [Concomitant]
     Active Substance: PERINDOPRIL
  6. LANSOPRAZOLE. [Concomitant]
     Active Substance: LANSOPRAZOLE
  7. METONIA [Concomitant]
     Active Substance: METOCLOPRAMIDE
  8. AMIODARONE [Concomitant]
     Active Substance: AMIODARONE
  9. SYNTHROID [Concomitant]
     Active Substance: LEVOTHYROXINE SODIUM
  10. HYDROCHLOROTHIAZIDE. [Concomitant]
     Active Substance: HYDROCHLOROTHIAZIDE

REACTIONS (1)
  - Pneumocystis jirovecii pneumonia [Not Recovered/Not Resolved]
